FAERS Safety Report 22610991 (Version 1)
Quarter: 2023Q2

REPORT INFORMATION
  Report Type: Spontaneous
  Country: AU (occurrence: AU)
  Receive Date: 20230616
  Receipt Date: 20230616
  Transmission Date: 20230722
  Serious: Yes (Other)
  Sender: FDA-Public Use
  Company Number: AU-NOVOPROD-1078376

PATIENT
  Age: 30 Year
  Sex: Female

DRUGS (2)
  1. INSULIN ASPART [Suspect]
     Active Substance: INSULIN ASPART
     Indication: Monogenic diabetes
     Dosage: UNK
  2. LEVEMIR [Suspect]
     Active Substance: INSULIN DETEMIR
     Indication: Monogenic diabetes
     Dosage: UNK

REACTIONS (3)
  - Hepatic haematoma [Recovered/Resolved]
  - Anaemic retinopathy [Unknown]
  - Maternal exposure during pregnancy [Unknown]
